FAERS Safety Report 9437351 (Version 1)
Quarter: 2013Q3

REPORT INFORMATION
  Report Type: Spontaneous
  Country: US (occurrence: US)
  Receive Date: 20130802
  Receipt Date: 20130802
  Transmission Date: 20140515
  Serious: No
  Sender: FDA-Public Use
  Company Number: US-BAYER-2013-093476

PATIENT
  Sex: Male

DRUGS (3)
  1. BAYER ADVANCED ASPIRIN REGULAR STRENGTH [Suspect]
     Indication: ANALGESIC THERAPY
     Dosage: 1 DF, QD DAILY
     Route: 048
  2. BAYER ADVANCED ASPIRIN EXTRA STRENGTH [Suspect]
     Indication: ANALGESIC THERAPY
     Dosage: 1 DF, QD DAILY
     Route: 048
  3. ALEVE CAPLET [Suspect]
     Indication: ANALGESIC THERAPY
     Route: 048

REACTIONS (1)
  - Drug ineffective [None]
